FAERS Safety Report 4951777-8 (Version None)
Quarter: 2006Q1

REPORT INFORMATION
  Report Type: 
  Country: None (occurrence: None)
  Receive Date: 20060323
  Receipt Date: 20060313
  Transmission Date: 20060701
  Serious: Yes (Other)
  Sender: FDA-Public Use
  Company Number: PHEH2006US03331

PATIENT
  Age: 36 Year
  Sex: Female

DRUGS (1)
  1. GENTEAL LUBRICATING EYE GEL (NVO) [Suspect]
     Dosage: UNK GTT, UNK

REACTIONS (1)
  - CATARACT [None]
